FAERS Safety Report 21749466 (Version 5)
Quarter: 2023Q1

REPORT INFORMATION
  Report Type: Report from Study
  Country: GB (occurrence: GB)
  Receive Date: 20221219
  Receipt Date: 20230307
  Transmission Date: 20230417
  Serious: Yes (Hospitalization)
  Sender: FDA-Public Use
  Company Number: GB-BAYER-2022A171486

PATIENT
  Age: 2 Year
  Sex: Female
  Weight: 19.2 kg

DRUGS (25)
  1. REGORAFENIB [Suspect]
     Active Substance: REGORAFENIB
     Indication: Rhabdomyosarcoma
     Dosage: 65 MG, QD
     Route: 048
     Dates: start: 20220801, end: 20221202
  2. REGORAFENIB [Suspect]
     Active Substance: REGORAFENIB
     Indication: Rhabdomyosarcoma
     Dosage: 65 MG, QD
     Route: 048
     Dates: end: 20221212
  3. REGORAFENIB [Suspect]
     Active Substance: REGORAFENIB
     Indication: Rhabdomyosarcoma
     Dosage: 65 MG, QD
     Route: 048
     Dates: end: 20230103
  4. IRINOTECAN [Suspect]
     Active Substance: IRINOTECAN
     Indication: Rhabdomyosarcoma
     Dosage: 40 MG, QD
     Route: 042
     Dates: start: 20220725, end: 20230119
  5. IRINOTECAN [Suspect]
     Active Substance: IRINOTECAN
     Indication: Rhabdomyosarcoma
     Dosage: 40 MG, QD
     Route: 042
     Dates: end: 20221214
  6. IRINOTECAN [Suspect]
     Active Substance: IRINOTECAN
     Indication: Rhabdomyosarcoma
     Dosage: 30 MG, QD
     Route: 042
     Dates: end: 20230119
  7. VINCRISTINE [Suspect]
     Active Substance: VINCRISTINE
     Indication: Rhabdomyosarcoma
     Dosage: 1.2 MG, QD
     Route: 042
     Dates: start: 20220725, end: 20221128
  8. VINCRISTINE [Suspect]
     Active Substance: VINCRISTINE
     Indication: Rhabdomyosarcoma
     Dosage: 1.2 MG, QD
     Route: 042
     Dates: end: 20221214
  9. VINCRISTINE [Suspect]
     Active Substance: VINCRISTINE
     Indication: Rhabdomyosarcoma
     Dosage: 1.2 MG, QD
     Route: 042
     Dates: end: 20230117
  10. LEVOMEPROMAZINA [LEVOMEPROMAZINE] [Concomitant]
     Indication: Antiemetic supportive care
     Dosage: UNK
     Dates: start: 20220804
  11. ONDANSETRON [Concomitant]
     Active Substance: ONDANSETRON
     Indication: Antiemetic supportive care
     Dosage: UNK
     Dates: start: 20220222
  12. ONDANSETRON [Concomitant]
     Active Substance: ONDANSETRON
     Indication: Nausea
     Dosage: UNK
     Dates: start: 20220722
  13. OMEPRAZOLE [Concomitant]
     Active Substance: OMEPRAZOLE
     Indication: Gastrointestinal disorder prophylaxis
     Dosage: UNK
     Dates: start: 20220823
  14. MORPHINE SULFATE [Concomitant]
     Active Substance: MORPHINE SULFATE
     Indication: Pain
     Dosage: UNK
     Dates: start: 20220722
  15. COTRIMOXAZOLE [Concomitant]
     Active Substance: SULFAMETHOXAZOLE\TRIMETHOPRIM
     Indication: Prophylaxis
     Dosage: UNK
     Dates: start: 20220730
  16. FUSIDIC ACID;HYDROCORTISONE [Concomitant]
     Indication: Stoma site infection
     Dosage: UNK
     Dates: start: 20221127, end: 20221211
  17. CLOTRIMAZOLE [Concomitant]
     Active Substance: CLOTRIMAZOLE
     Indication: Stoma site infection
     Dosage: UNK
     Dates: start: 20221121, end: 20221128
  18. ACETAMINOPHEN [Concomitant]
     Active Substance: ACETAMINOPHEN
     Indication: Pain
     Dosage: UNK
     Dates: start: 20220622
  19. ACETAMINOPHEN [Concomitant]
     Active Substance: ACETAMINOPHEN
     Indication: Pyrexia
  20. LOPRAMIDE [Concomitant]
     Indication: Diarrhoea
     Dosage: UNK
     Dates: start: 20230104, end: 20230104
  21. DOCUSATE SODIUM [Concomitant]
     Active Substance: DOCUSATE SODIUM
     Indication: Constipation
     Dosage: UNK
     Dates: start: 20230104
  22. CIPROFLOXACIN [Concomitant]
     Active Substance: CIPROFLOXACIN
     Indication: Infection
     Dosage: UNK
     Dates: start: 20230106, end: 20230112
  23. HYDROCORTISONE;MICONAZOLE [Concomitant]
     Indication: Infection
     Dosage: UNK
     Dates: start: 20230106, end: 20230115
  24. LEVOMEPROMAZINE [Concomitant]
     Active Substance: LEVOMEPROMAZINE
     Indication: Vomiting
     Dosage: UNK
     Dates: start: 20220803
  25. LEVOMEPROMAZINE [Concomitant]
     Active Substance: LEVOMEPROMAZINE
     Indication: Nausea

REACTIONS (4)
  - Device related infection [Recovered/Resolved]
  - Dehydration [Recovered/Resolved]
  - Device related infection [Not Recovered/Not Resolved]
  - Pyrexia [Recovered/Resolved with Sequelae]

NARRATIVE: CASE EVENT DATE: 20221202
